FAERS Safety Report 5859991-4 (Version None)
Quarter: 2008Q3

REPORT INFORMATION
  Report Type: 
  Country: None (occurrence: None)
  Receive Date: 20080827
  Receipt Date: 20080819
  Transmission Date: 20090109
  Serious: Yes (Death, Hospitalization)
  Sender: FDA-Public Use
  Company Number: US-ELI_LILLY_AND_COMPANY-US200808003679

PATIENT
  Sex: Male

DRUGS (1)
  1. BYETTA [Suspect]
     Route: 058
     Dates: start: 20060101, end: 20071001

REACTIONS (7)
  - ASTHENIA [None]
  - CARDIAC ARREST [None]
  - CONFUSIONAL STATE [None]
  - FALL [None]
  - PAIN [None]
  - RENAL FAILURE [None]
  - STAPHYLOCOCCAL INFECTION [None]
